FAERS Safety Report 5010607-9 (Version None)
Quarter: 2006Q2

REPORT INFORMATION
  Report Type: 
  Country: None (occurrence: None)
  Receive Date: 20060525
  Receipt Date: 20060515
  Transmission Date: 20061013
  Serious: Yes (Hospitalization)
  Sender: FDA-Public Use
  Company Number: FRWYE623815MAY06

PATIENT
  Age: 56 Year
  Sex: Male
  Weight: 65 kg

DRUGS (3)
  1. ENBREL [Suspect]
     Indication: RHEUMATOID ARTHRITIS
     Route: 058
     Dates: start: 20041101, end: 20060309
  2. IBUPROFEN [Suspect]
     Indication: DRUG USE FOR UNKNOWN INDICATION
     Route: 048
     Dates: start: 20051101, end: 20060315
  3. PARIET [Suspect]
     Indication: DRUG USE FOR UNKNOWN INDICATION
     Route: 048
     Dates: start: 20051101, end: 20060315

REACTIONS (2)
  - BONE MARROW EOSINOPHILIC LEUKOCYTE COUNT INCREASED [None]
  - PANCYTOPENIA [None]
